FAERS Safety Report 23743827 (Version 1)
Quarter: 2024Q2

REPORT INFORMATION
  Report Type: Spontaneous
  Country: DE (occurrence: DE)
  Receive Date: 20240415
  Receipt Date: 20240415
  Transmission Date: 20240716
  Serious: Yes (Other)
  Sender: FDA-Public Use
  Company Number: None

PATIENT
  Age: 59 Year
  Sex: Female
  Weight: 65 kg

DRUGS (2)
  1. JANUMET [Suspect]
     Active Substance: METFORMIN HYDROCHLORIDE\SITAGLIPTIN PHOSPHATE
     Indication: Type 2 diabetes mellitus
     Dosage: 100MG SITAGLIPTIN/DAY
     Route: 048
     Dates: start: 201610
  2. TRULICITY [Suspect]
     Active Substance: DULAGLUTIDE
     Indication: Type 2 diabetes mellitus
     Dosage: 1.5MG THURSDAYS
     Route: 058
     Dates: start: 202206

REACTIONS (8)
  - Hypokalaemia [Unknown]
  - Acute kidney injury [Unknown]
  - Lactic acidosis [Unknown]
  - Dehydration [Unknown]
  - Metabolic acidosis [Unknown]
  - Hypocalcaemia [Unknown]
  - Hyperglycaemia [Unknown]
  - Hyperphosphaturia [Unknown]

NARRATIVE: CASE EVENT DATE: 20240301
